FAERS Safety Report 17195003 (Version 2)
Quarter: 2020Q2

REPORT INFORMATION
  Report Type: Report from Study
  Country: DE (occurrence: DE)
  Receive Date: 20191224
  Receipt Date: 20200407
  Transmission Date: 20200713
  Serious: Yes (Other)
  Sender: FDA-Public Use
  Company Number: DE-TEVA-2019-DE-1155622

PATIENT
  Age: 14 Year
  Sex: Female
  Weight: 38 kg

DRUGS (2)
  1. METHOTREXATE. [Suspect]
     Active Substance: METHOTREXATE
     Indication: JUVENILE IDIOPATHIC ARTHRITIS
     Dosage: 15 MG PER 1 WEEK
     Route: 065
     Dates: start: 20040701
  2. ADALIMUMAB [Suspect]
     Active Substance: ADALIMUMAB
     Indication: JUVENILE IDIOPATHIC ARTHRITIS
     Dosage: 40 MG PER 2 WEEKS
     Route: 058
     Dates: start: 20120812, end: 20150511

REACTIONS (1)
  - Osteonecrosis [Recovered/Resolved]

NARRATIVE: CASE EVENT DATE: 20150201
